FAERS Safety Report 9114308 (Version 1)
Quarter: 2013Q1

REPORT INFORMATION
  Report Type: Spontaneous
  Country: NL (occurrence: NL)
  Receive Date: 20130208
  Receipt Date: 20130208
  Transmission Date: 20140127
  Serious: Yes (Life-Threatening)
  Sender: FDA-Public Use
  Company Number: NL-009507513-1302NLD002526

PATIENT
  Age: 53 Year
  Sex: Female

DRUGS (3)
  1. AMITRIPTYLINE HYDROCHLORIDE [Suspect]
     Indication: DEPRESSION
     Route: 048
  2. CITALOPRAM [Suspect]
  3. VENLAFAXINE HYDROCHLORIDE [Suspect]

REACTIONS (2)
  - Toxicity to various agents [Recovered/Resolved with Sequelae]
  - Overdose [Unknown]
